FAERS Safety Report 4754765-X (Version None)
Quarter: 2005Q3

REPORT INFORMATION
  Report Type: 
  Country: None (occurrence: None)
  Receive Date: 20050826
  Receipt Date: 20050826
  Transmission Date: 20060218
  Serious: No
  Sender: FDA-Public Use
  Company Number: None

PATIENT
  Age: 66 Year
  Sex: Female

DRUGS (1)
  1. TARKA [Suspect]

REACTIONS (3)
  - DIZZINESS [None]
  - PARAESTHESIA ORAL [None]
  - THROAT IRRITATION [None]
